FAERS Safety Report 15222285 (Version 1)
Quarter: 2018Q3

REPORT INFORMATION
  Report Type: Spontaneous
  Country: US (occurrence: US)
  Receive Date: 20180731
  Receipt Date: 20180731
  Transmission Date: 20181010
  Serious: Yes (Other)
  Sender: FDA-Public Use
  Company Number: US-JNJFOC-20180732626

PATIENT
  Sex: Female
  Weight: 72.58 kg

DRUGS (9)
  1. FLEXERIL [Concomitant]
     Active Substance: CYCLOBENZAPRINE HYDROCHLORIDE
     Indication: MUSCLE RELAXANT THERAPY
     Route: 065
  2. DURAGESIC [Suspect]
     Active Substance: FENTANYL
     Indication: BACK PAIN
     Route: 062
  3. FENTANYL. [Suspect]
     Active Substance: FENTANYL
     Indication: BACK PAIN
     Route: 062
     Dates: end: 2018
  4. FENTANYL. [Suspect]
     Active Substance: FENTANYL
     Indication: BACK PAIN
     Route: 062
  5. DURAGESIC [Suspect]
     Active Substance: FENTANYL
     Indication: BACK PAIN
     Route: 062
  6. FENTANYL. [Suspect]
     Active Substance: FENTANYL
     Indication: BACK PAIN
     Route: 062
  7. FENTANYL. [Suspect]
     Active Substance: FENTANYL
     Indication: BACK PAIN
     Route: 062
     Dates: start: 2018
  8. DURAGESIC [Suspect]
     Active Substance: FENTANYL
     Indication: BACK PAIN
     Route: 062
  9. DURAGESIC [Suspect]
     Active Substance: FENTANYL
     Indication: BACK PAIN
     Route: 062

REACTIONS (1)
  - Multiple sclerosis [Unknown]
